FAERS Safety Report 9684044 (Version 2)
Quarter: 2014Q1

REPORT INFORMATION
  Report Type: Spontaneous
  Country: US (occurrence: US)
  Receive Date: 20131112
  Receipt Date: 20140212
  Transmission Date: 20141002
  Serious: Yes (Hospitalization)
  Sender: FDA-Public Use
  Company Number: US-B.I. PHARMACEUTICALS,INC./RIDGEFIELD-2013-BI-36290BP

PATIENT
  Age: 82 Year
  Sex: Female
  Weight: 88.45 kg

DRUGS (10)
  1. PRADAXA [Suspect]
     Indication: ATRIAL FIBRILLATION
     Dosage: 300 MG
     Dates: start: 20101210, end: 20110115
  2. ZOCOR [Concomitant]
     Route: 048
  3. ALBUTEROL [Concomitant]
  4. BENAZEPRIL [Concomitant]
     Dosage: 40 MG
  5. ASPIRIN [Concomitant]
     Dosage: 81 MG
  6. VITAMIN D3 [Concomitant]
     Dosage: 81 MG
  7. HUMIRA [Concomitant]
     Dosage: 5.7857 MG
  8. METOPROLOL TARTRATE [Concomitant]
     Dosage: 25 MG
  9. PRESERVISION [Concomitant]
  10. MULTAQ [Concomitant]
     Dosage: 800 MG
     Route: 048

REACTIONS (2)
  - Gastrointestinal haemorrhage [Recovered/Resolved]
  - Anaemia [Unknown]
